FAERS Safety Report 16061460 (Version 1)
Quarter: 2019Q1

REPORT INFORMATION
  Report Type: Spontaneous
  Country: US (occurrence: US)
  Receive Date: 20190312
  Receipt Date: 20190312
  Transmission Date: 20190418
  Serious: No
  Sender: FDA-Public Use
  Company Number: US-ROCHE-2189447

PATIENT
  Age: 49 Year
  Sex: Female
  Weight: 68.2 kg

DRUGS (3)
  1. PREDNISONE. [Concomitant]
     Active Substance: PREDNISONE
     Route: 065
  2. BEVACIZUMAB. [Suspect]
     Active Substance: BEVACIZUMAB
     Indication: PARANEOPLASTIC SYNDROME
     Dosage: ON DAY 8 AND 22 ON A 28 DAY CYCLE.
     Route: 042
  3. TEMOZOLOMIDE. [Suspect]
     Active Substance: TEMOZOLOMIDE
     Indication: PARANEOPLASTIC SYNDROME
     Dosage: ON DAYS 1-7 AND DAYS 15-21
     Route: 048

REACTIONS (1)
  - Nausea [Unknown]
